FAERS Safety Report 5644454-1 (Version None)
Quarter: 2008Q1

REPORT INFORMATION
  Report Type: 
  Country: None (occurrence: None)
  Receive Date: 20080229
  Receipt Date: 20070116
  Transmission Date: 20080703
  Serious: No
  Sender: FDA-Public Use
  Company Number: A0634493A

PATIENT
  Age: 76 Year
  Sex: Female

DRUGS (2)
  1. VALTREX [Suspect]
     Dosage: 1G SINGLE DOSE
     Route: 048
     Dates: start: 20070102
  2. NO CONCURRENT MEDICATION [Concomitant]

REACTIONS (5)
  - DIZZINESS [None]
  - FEELING HOT [None]
  - PAIN [None]
  - VERTIGO [None]
  - VOMITING [None]
